FAERS Safety Report 6329868-9 (Version None)
Quarter: 2009Q3

REPORT INFORMATION
  Report Type: 
  Country: None (occurrence: None)
  Receive Date: 20090826
  Receipt Date: 20090824
  Transmission Date: 20100115
  Serious: Yes (Life-Threatening)
  Sender: FDA-Public Use
  Company Number: IT-WYE-G04289109

PATIENT
  Sex: Male

DRUGS (9)
  1. TAZOCIN [Suspect]
     Indication: PLEURAL EFFUSION
     Dosage: 13,5G
     Route: 042
     Dates: start: 20090627, end: 20090714
  2. LANSOPRAZOLE [Concomitant]
     Dosage: NOT REPORTED
  3. TAVANIC [Concomitant]
     Dosage: NOT REPORTED
  4. LASITONE [Concomitant]
     Dosage: NOT REPORTED
  5. CALCIUM LEVOFOLINATE [Concomitant]
     Dosage: NOT REPORTED
  6. SELEPARINA [Concomitant]
     Dosage: NOT REPORTED
  7. LASIX [Concomitant]
     Dosage: NOT REPORTED
  8. TAMSULOSIN HYDROCHLORIDE [Concomitant]
     Dosage: NOT REPORTED
  9. FERLIXIT [Concomitant]
     Dosage: NOT REPORTED

REACTIONS (2)
  - NEUTROPENIA [None]
  - SEPSIS [None]
